FAERS Safety Report 5335010-3 (Version None)
Quarter: 2007Q2

REPORT INFORMATION
  Report Type: 
  Country: None (occurrence: None)
  Receive Date: 20070525
  Receipt Date: 20070516
  Transmission Date: 20071010
  Serious: Yes (Death, Life-Threatening, Hospitalization)
  Sender: FDA-Public Use
  Company Number: B0468420A

PATIENT
  Age: 2 Month
  Sex: Male

DRUGS (1)
  1. PANADOL BABY SUSPENSION [Suspect]
     Indication: HYPERTHERMIA
     Dosage: 2.5ML SEE DOSAGE TEXT
     Route: 065

REACTIONS (4)
  - ADRENAL INSUFFICIENCY [None]
  - ANAPHYLACTIC SHOCK [None]
  - DISSEMINATED INTRAVASCULAR COAGULATION [None]
  - PHARMACEUTICAL PRODUCT COMPLAINT [None]
